FAERS Safety Report 19909139 (Version 2)
Quarter: 2022Q1

REPORT INFORMATION
  Report Type: Spontaneous
  Country: US (occurrence: US)
  Receive Date: 20211001
  Receipt Date: 20220214
  Transmission Date: 20220424
  Serious: Yes (Hospitalization, Other)
  Sender: FDA-Public Use
  Company Number: US-TEVA-2021-US-1959728

PATIENT
  Age: 55 Year
  Sex: Female

DRUGS (1)
  1. NUVIGIL [Suspect]
     Active Substance: ARMODAFINIL
     Dosage: 250
     Route: 065

REACTIONS (4)
  - Liver transplant [Unknown]
  - Narcolepsy [Unknown]
  - Product supply issue [Unknown]
  - Illness [Unknown]

NARRATIVE: CASE EVENT DATE: 20210101
